FAERS Safety Report 7447530-6 (Version None)
Quarter: 2011Q2

REPORT INFORMATION
  Report Type: 
  Country: None (occurrence: None)
  Receive Date: 20110429
  Receipt Date: 20110127
  Transmission Date: 20111010
  Serious: No
  Sender: FDA-Public Use
  Company Number: US-ASTRAZENECA-2011SE05090

PATIENT
  Age: 53 Year
  Sex: Female

DRUGS (1)
  1. NEXIUM [Suspect]
     Dosage: 2 PER DAY
     Route: 048

REACTIONS (4)
  - SINUSITIS [None]
  - DYSPEPSIA [None]
  - MALAISE [None]
  - CHEST PAIN [None]
